FAERS Safety Report 5357479-0 (Version None)
Quarter: 2007Q2

REPORT INFORMATION
  Report Type: 
  Country: None (occurrence: None)
  Receive Date: 20070614
  Receipt Date: 20070611
  Transmission Date: 20071010
  Serious: Yes (Hospitalization, Other)
  Sender: FDA-Public Use
  Company Number: US-BRISTOL-MYERS SQUIBB COMPANY-13772009

PATIENT
  Age: 51 Year
  Sex: Male

DRUGS (7)
  1. ATAZANAVIR SULFATE [Suspect]
     Dates: start: 20031101
  2. RITONAVIR [Suspect]
     Dates: start: 20031101
  3. CETIRIZINE HCL [Concomitant]
     Indication: HYPERSENSITIVITY
  4. OXYCODONE HCL + ACETAMINOPHEN [Concomitant]
  5. SUMATRIPTAN SUCCINATE [Concomitant]
     Indication: MIGRAINE
     Route: 045
  6. LAMIVUDINE [Concomitant]
  7. STAVUDINE [Concomitant]

REACTIONS (2)
  - GOUT [None]
  - NEPHROLITHIASIS [None]
